FAERS Safety Report 8170924-0 (Version None)
Quarter: 2012Q1

REPORT INFORMATION
  Report Type: 
  Country: None (occurrence: None)
  Receive Date: 20120228
  Receipt Date: 20120227
  Transmission Date: 20120608
  Serious: Yes (Death, Hospitalization)
  Sender: FDA-Public Use
  Company Number: US-ACTELION-A-NJ2011-50154

PATIENT

DRUGS (2)
  1. COUMADIN [Concomitant]
  2. TRACLEER [Suspect]
     Indication: PULMONARY ARTERIAL HYPERTENSION
     Dosage: UNK
     Route: 048
     Dates: start: 20100412

REACTIONS (6)
  - BLOOD PRESSURE ABNORMAL [None]
  - DIZZINESS [None]
  - COUGH [None]
  - LOSS OF CONSCIOUSNESS [None]
  - DEATH [None]
  - HYPOTENSION [None]
